FAERS Safety Report 14648750 (Version 1)
Quarter: 2018Q1

REPORT INFORMATION
  Report Type: Spontaneous
  Country: US (occurrence: US)
  Receive Date: 20180316
  Receipt Date: 20180316
  Transmission Date: 20180509
  Serious: Yes (Life-Threatening)
  Sender: FDA-Public Use
  Company Number: None

PATIENT
  Age: 28 Year

DRUGS (1)
  1. KRABOT KRATOM FINELY GROUND POWDER [Suspect]
     Active Substance: MITRAGYNINE\HERBALS

REACTIONS (5)
  - Gait disturbance [None]
  - Fall [None]
  - Incoherent [None]
  - Alcohol use [None]
  - Product use issue [None]

NARRATIVE: CASE EVENT DATE: 20180219
